FAERS Safety Report 9613630 (Version 3)
Quarter: 2014Q2

REPORT INFORMATION
  Report Type: Spontaneous
  Country: US (occurrence: US)
  Receive Date: 20131010
  Receipt Date: 20140410
  Transmission Date: 20141212
  Serious: Yes (Hospitalization, Other)
  Sender: FDA-Public Use
  Company Number: US-TEVA-423622USA

PATIENT
  Sex: Female

DRUGS (1)
  1. JOLESSA TABLET 0.15/0.03MG [Suspect]

REACTIONS (8)
  - Pulmonary embolism [Recovering/Resolving]
  - Pulmonary artery thrombosis [Recovering/Resolving]
  - Pneumonia staphylococcal [Recovering/Resolving]
  - Atelectasis [Recovered/Resolved]
  - Pleural effusion [Recovered/Resolved]
  - Cholecystectomy [Recovering/Resolving]
  - Dyspnoea [Recovered/Resolved]
  - Chest pain [Recovered/Resolved]
